FAERS Safety Report 17841275 (Version 1)
Quarter: 2020Q2

REPORT INFORMATION
  Report Type: Spontaneous
  Country: ES (occurrence: ES)
  Receive Date: 20200529
  Receipt Date: 20200529
  Transmission Date: 20200714
  Serious: Yes (Hospitalization, Other)
  Sender: FDA-Public Use
  Company Number: ES-TEVA-2020-ES-1240532

PATIENT
  Age: 58 Year
  Sex: Male

DRUGS (4)
  1. HIDROXICLOROQUINA (2143A) [Suspect]
     Active Substance: HYDROXYCHLOROQUINE
     Indication: COVID-19 PNEUMONIA
     Dosage: 400 MILLIGRAM DAILY;
     Route: 048
     Dates: start: 20200331, end: 20200402
  2. AZITROMICINA (7019A) [Suspect]
     Active Substance: AZITHROMYCIN
     Indication: COVID-19 PNEUMONIA
     Dosage: 500 MILLIGRAM DAILY;
     Route: 048
     Dates: start: 20200331, end: 20200407
  3. ROACTEMRA [Suspect]
     Active Substance: TOCILIZUMAB
     Indication: COVID-19
     Dosage: 600 MG
     Route: 042
     Dates: start: 20200408, end: 20200408
  4. ENOXAPARINA (2482A) [Suspect]
     Active Substance: ENOXAPARIN
     Dosage: 160 MILLIGRAM DAILY;
     Route: 058
     Dates: start: 20200409, end: 20200429

REACTIONS (2)
  - Atrial fibrillation [Recovered/Resolved]
  - Thrombocytopenia [Recovered/Resolved]

NARRATIVE: CASE EVENT DATE: 20200410
